FAERS Safety Report 10487024 (Version 1)
Quarter: 2014Q3

REPORT INFORMATION
  Report Type: Spontaneous
  Country: US (occurrence: None)
  Receive Date: 20140930
  Receipt Date: 20140930
  Transmission Date: 20150326
  Serious: No
  Sender: FDA-Public Use
  Company Number: None

PATIENT

DRUGS (1)
  1. COPAXONE [Suspect]
     Active Substance: GLATIRAMER ACETATE
     Dosage: 20MG?DAILY?SQ
     Dates: start: 20120516

REACTIONS (3)
  - Palpitations [None]
  - Malaise [None]
  - Flushing [None]

NARRATIVE: CASE EVENT DATE: 20140929
